FAERS Safety Report 9298500 (Version 1)
Quarter: 2013Q2

REPORT INFORMATION
  Report Type: Spontaneous
  Country: US (occurrence: None)
  Receive Date: 20130515
  Receipt Date: 20130515
  Transmission Date: 20140414
  Serious: Yes (Death)
  Sender: FDA-Public Use
  Company Number: UTC-032339

PATIENT
  Age: 85 Year
  Sex: Male
  Weight: 72.54 kg

DRUGS (2)
  1. TYVASCO [Suspect]
     Indication: PULMONARY ARTERIAL HYPERTENSION
     Dosage: 3-9 BREATHS/DOSE PER DAY.
     Route: 055
     Dates: start: 20130220
  2. WARFARIN [Concomitant]

REACTIONS (1)
  - Hospice care [None]
